FAERS Safety Report 8692005 (Version 6)
Quarter: 2013Q1

REPORT INFORMATION
  Report Type: Spontaneous
  Country: JP (occurrence: JP)
  Receive Date: 20120730
  Receipt Date: 20130205
  Transmission Date: 20140127
  Serious: Yes (Life-Threatening, Hospitalization)
  Sender: FDA-Public Use
  Company Number: JP-CELGENEUS-087-21880-12072598

PATIENT
  Age: 77 Year
  Sex: Female
  Weight: 51 kg

DRUGS (14)
  1. REVLIMID [Suspect]
     Indication: PLASMA CELL MYELOMA
     Dosage: 10 MILLIGRAM
     Route: 048
     Dates: start: 20120106, end: 20120106
  2. REVLIMID [Suspect]
     Dosage: 20 MILLIGRAM
     Route: 048
     Dates: start: 20120907, end: 20120911
  3. REVLIMID [Suspect]
     Route: 048
     Dates: start: 20121204
  4. LENADEX [Suspect]
     Indication: PLASMA CELL MYELOMA
     Dosage: 12 MILLIGRAM
     Route: 048
     Dates: start: 20120106, end: 20120909
  5. LENADEX [Suspect]
     Route: 048
     Dates: start: 20121204
  6. MELPHALAN [Concomitant]
     Indication: PLASMA CELL MYELOMA
     Route: 065
  7. PREDNISONE [Concomitant]
     Indication: PLASMA CELL MYELOMA
     Route: 065
  8. ACINON [Concomitant]
     Indication: GASTROOESOPHAGEAL REFLUX DISEASE
     Dosage: 300 MILLIGRAM
     Route: 048
     Dates: start: 20070611
  9. CALFINA [Concomitant]
     Indication: OSTEOPOROSIS
     Dosage: .5 MICROGRAM
     Route: 048
     Dates: start: 20070611
  10. BLOPRESS [Concomitant]
     Indication: HYPERTENSION
     Dosage: 4 MILLIGRAM
     Route: 048
     Dates: start: 20070611
  11. ZYLORIC [Concomitant]
     Indication: HYPERURICAEMIA
     Dosage: 200 MILLIGRAM
     Route: 048
     Dates: start: 20070611
  12. BAYASPIRIN [Concomitant]
     Indication: THROMBOSIS PROPHYLAXIS
     Dosage: 100 MILLIGRAM
     Route: 048
     Dates: start: 20120106
  13. VFEND [Concomitant]
     Indication: ASPERGILLUS INFECTION
     Dosage: 400 MILLIGRAM
     Route: 048
     Dates: start: 20070906
  14. ANTIBIOTICS [Concomitant]
     Indication: INFECTION
     Route: 065
     Dates: start: 20120913

REACTIONS (3)
  - Cholecystitis [Recovered/Resolved]
  - Cholelithiasis [Recovered/Resolved]
  - Post procedural sepsis [Recovered/Resolved]
